FAERS Safety Report 8605348-2 (Version None)
Quarter: 2012Q3

REPORT INFORMATION
  Report Type: 
  Country: None (occurrence: None)
  Receive Date: 20120820
  Receipt Date: 20120810
  Transmission Date: 20120928
  Serious: Yes (Other)
  Sender: FDA-Public Use
  Company Number: US-ASTRAZENECA-2012SE56894

PATIENT
  Age: 47 Year
  Sex: Female

DRUGS (3)
  1. TOPROL-XL [Suspect]
     Route: 048
  2. FLUTICASONE PROPIONATE [Concomitant]
  3. ALBUTEROL [Concomitant]

REACTIONS (7)
  - JOINT INJURY [None]
  - FALL [None]
  - DEHYDRATION [None]
  - INTENTIONAL DRUG MISUSE [None]
  - MALAISE [None]
  - GASTRIC DISORDER [None]
  - CONCUSSION [None]
